FAERS Safety Report 25927661 (Version 1)
Quarter: 2025Q4

REPORT INFORMATION
  Report Type: Spontaneous
  Country: GB (occurrence: GB)
  Receive Date: 20251016
  Receipt Date: 20251016
  Transmission Date: 20260118
  Serious: No
  Sender: ALKEM
  Company Number: GB-ALKEM LABORATORIES LIMITED-GB-ALKEM-2025-07471

PATIENT
  Age: 40 Year
  Sex: Male

DRUGS (5)
  1. RIVAROXABAN [Interacting]
     Active Substance: RIVAROXABAN
     Indication: Deep vein thrombosis
     Dosage: 15 MILLIGRAM, BID
     Route: 048
  2. ENTRECTINIB [Interacting]
     Active Substance: ENTRECTINIB
     Indication: Lung adenocarcinoma
     Dosage: 600 MILLIGRAM, QD
     Route: 065
  3. ENTRECTINIB [Interacting]
     Active Substance: ENTRECTINIB
     Indication: Metastases to central nervous system
  4. AMIODARONE [Concomitant]
     Active Substance: AMIODARONE
     Indication: Ventricular tachycardia
     Dosage: UNK
     Route: 065
  5. METARAMINOL [Concomitant]
     Active Substance: METARAMINOL
     Indication: Blood pressure measurement
     Dosage: UNK
     Route: 065

REACTIONS (4)
  - Anticoagulation drug level decreased [Unknown]
  - Drug interaction [Unknown]
  - Treatment failure [Unknown]
  - Drug ineffective [Unknown]
